FAERS Safety Report 14392266 (Version 2)
Quarter: 2018Q1

REPORT INFORMATION
  Report Type: Spontaneous
  Country: US (occurrence: US)
  Receive Date: 20180116
  Receipt Date: 20180305
  Transmission Date: 20180509
  Serious: Yes (Hospitalization, Other)
  Sender: FDA-Public Use
  Company Number: US-GLAXOSMITHKLINE-US2018004346

PATIENT
  Age: 84 Year
  Sex: Female

DRUGS (15)
  1. BREO ELLIPTA [Suspect]
     Active Substance: FLUTICASONE FUROATE\VILANTEROL TRIFENATATE
     Indication: ASTHMA
  2. LEVOTHYROXINE. [Concomitant]
     Active Substance: LEVOTHYROXINE
  3. TOUJEO [Concomitant]
     Active Substance: INSULIN GLARGINE
  4. GLIMEPIRIDE. [Concomitant]
     Active Substance: GLIMEPIRIDE
  5. LORATADINE. [Concomitant]
     Active Substance: LORATADINE
  6. AMLODIPINE [Concomitant]
     Active Substance: AMLODIPINE BESYLATE
  7. ASPIRIN (BABY) [Concomitant]
     Active Substance: ASPIRIN
  8. SINGULAIR [Concomitant]
     Active Substance: MONTELUKAST SODIUM
  9. VITAMIN B12 [Concomitant]
     Active Substance: CYANOCOBALAMIN
  10. ALEVE [Concomitant]
     Active Substance: NAPROXEN SODIUM
  11. DILANTIN [Concomitant]
     Active Substance: PHENYTOIN
  12. XANAX [Concomitant]
     Active Substance: ALPRAZOLAM
  13. BREO ELLIPTA [Suspect]
     Active Substance: FLUTICASONE FUROATE\VILANTEROL TRIFENATATE
     Indication: CHRONIC OBSTRUCTIVE PULMONARY DISEASE
     Dosage: 1 DF, 1D
     Dates: start: 201606
  14. PAROXETINE. [Concomitant]
     Active Substance: PAROXETINE
  15. RANITIDINE. [Concomitant]
     Active Substance: RANITIDINE

REACTIONS (2)
  - Gait inability [Recovered/Resolved]
  - Polymyalgia rheumatica [Not Recovered/Not Resolved]

NARRATIVE: CASE EVENT DATE: 20170514
